FAERS Safety Report 17094115 (Version 2)
Quarter: 2020Q2

REPORT INFORMATION
  Report Type: Report from Study
  Country: US (occurrence: US)
  Receive Date: 20191129
  Receipt Date: 20200505
  Transmission Date: 20200713
  Serious: Yes (Other)
  Sender: FDA-Public Use
  Company Number: US-TEVA-2019-US-1144228

PATIENT
  Sex: Female

DRUGS (6)
  1. COPAXONE [Suspect]
     Active Substance: GLATIRAMER ACETATE
     Indication: MULTIPLE SCLEROSIS
     Dosage: COPAXONE 40 MG 3 TIME PER WEEK
     Route: 058
     Dates: start: 20180419
  2. CLARITHROMYCIN. [Concomitant]
     Active Substance: CLARITHROMYCIN
  3. AIMOVIG [Concomitant]
     Active Substance: ERENUMAB-AOOE
  4. METHYLPREDNISOLON [Concomitant]
     Active Substance: METHYLPREDNISOLONE
  5. TOPIRAMATE. [Concomitant]
     Active Substance: TOPIRAMATE
  6. CEFDINIR. [Concomitant]
     Active Substance: CEFDINIR

REACTIONS (5)
  - Multiple sclerosis relapse [Not Recovered/Not Resolved]
  - Thrombosis [Not Recovered/Not Resolved]
  - Gait disturbance [Not Recovered/Not Resolved]
  - Memory impairment [Unknown]
  - Pulmonary thrombosis [Not Recovered/Not Resolved]
